FAERS Safety Report 15566957 (Version 1)
Quarter: 2018Q4

REPORT INFORMATION
  Report Type: Spontaneous
  Country: IN (occurrence: IN)
  Receive Date: 20181030
  Receipt Date: 20181030
  Transmission Date: 20190205
  Serious: Yes (Hospitalization)
  Sender: FDA-Public Use
  Company Number: IN-FRESENIUS KABI-FK201811149

PATIENT
  Age: 40 Year
  Sex: Male

DRUGS (4)
  1. SEVOFLURANE. [Concomitant]
     Active Substance: SEVOFLURANE
  2. SEVOFLURANE. [Concomitant]
     Active Substance: SEVOFLURANE
  3. PROPOFOL (MANUFACTURER UNKNOWN) [Suspect]
     Active Substance: PROPOFOL
     Dosage: 50 MG PROPOFOL BOLUSES UP TO 200 MG
     Route: 065
  4. PROPOFOL (MANUFACTURER UNKNOWN) [Suspect]
     Active Substance: PROPOFOL
     Indication: SEDATION
     Dosage: 1.5 MG/KG
     Route: 065

REACTIONS (1)
  - Myoclonus [Not Recovered/Not Resolved]
